FAERS Safety Report 15634549 (Version 2)
Quarter: 2019Q1

REPORT INFORMATION
  Report Type: Report from Study
  Country: US (occurrence: US)
  Receive Date: 20181119
  Receipt Date: 20190212
  Transmission Date: 20190417
  Serious: Yes (Other)
  Sender: FDA-Public Use
  Company Number: PHEH2018US048438

PATIENT
  Sex: Female

DRUGS (1)
  1. ENTRESTO [Suspect]
     Active Substance: SACUBITRIL\VALSARTAN
     Indication: EJECTION FRACTION DECREASED
     Dosage: 2 DF (SACUBITRIL 24 MG/ VALSARTAN 26 MG), BID
     Route: 048

REACTIONS (9)
  - Gastroenteritis viral [Unknown]
  - Neoplasm malignant [Unknown]
  - Nasopharyngitis [Unknown]
  - Swelling face [Unknown]
  - Cough [Unknown]
  - Product use in unapproved indication [Unknown]
  - Pyrexia [Unknown]
  - Oral herpes [Unknown]
  - Eye swelling [Unknown]
